FAERS Safety Report 4620942-1 (Version None)
Quarter: 2005Q1

REPORT INFORMATION
  Report Type: 
  Country: None (occurrence: None)
  Receive Date: 20050325
  Receipt Date: 20050310
  Transmission Date: 20050727
  Serious: Yes (Life-Threatening)
  Sender: FDA-Public Use
  Company Number: A01200501462

PATIENT
  Sex: Male

DRUGS (6)
  1. PLAVIX [Suspect]
     Indication: PROPHYLAXIS
     Dosage: 75 MG OD/75 MG OD, ORAL
     Route: 048
     Dates: start: 20040330, end: 20040405
  2. PLAVIX [Suspect]
     Indication: PROPHYLAXIS
     Dosage: 75 MG OD/75 MG OD, ORAL
     Route: 048
     Dates: start: 20041215, end: 20041219
  3. ACETYL SALICYLIC ACID USP BAT [Suspect]
     Indication: ANTIPLATELET THERAPY
     Dosage: 0.3 QD, ORAL
     Route: 048
     Dates: start: 20040330, end: 20040405
  4. ACETYL SALICYLIC ACID USP BAT [Suspect]
     Indication: PLATELET AGGREGATION
     Dosage: 0.3 QD, ORAL
     Route: 048
     Dates: start: 20040330, end: 20040405
  5. LOW MOLECULAR WEIGHT HEPARIN (HEPARIN-FRACTION) [Concomitant]
  6. MAIPULING (TRADITIONAL MEDICINE-HERBAL  PREPARATION) [Concomitant]

REACTIONS (2)
  - HAEMATURIA [None]
  - HAEMOLYTIC ANAEMIA [None]
